FAERS Safety Report 15853395 (Version 1)
Quarter: 2019Q1

REPORT INFORMATION
  Report Type: Spontaneous
  Country: US (occurrence: US)
  Receive Date: 20190120
  Receipt Date: 20190120
  Transmission Date: 20190417
  Serious: Yes (Hospitalization)
  Sender: FDA-Public Use
  Company Number: None

PATIENT
  Age: 54 Year
  Sex: Female

DRUGS (10)
  1. METOPROLOL TARTRATE 50MG TAB [Concomitant]
  2. QUETIAPINE 200MG TAB [Concomitant]
  3. OXYCODONE /ACTAMINOPHEN 7.5MG-325MG [Concomitant]
  4. CITALOPRAM 20 MG TAB [Concomitant]
  5. ESTRADIOL 1 MG TAB [Concomitant]
  6. HYDROXYZINE 50MG [Concomitant]
  7. DIAZEPAM 5 MG TAB [Concomitant]
  8. DOXYCYCLINE HYCLATE 100 MG [Concomitant]
     Active Substance: DOXYCYCLINE HYCLATE
  9. LITHIUM CARBONATE 300MG CAP [Concomitant]
  10. HUMIRA [Suspect]
     Active Substance: ADALIMUMAB
     Indication: HIDRADENITIS
     Dosage: ?          OTHER FREQUENCY:EVERY WEEK;?
     Route: 058
     Dates: start: 20180918, end: 20190120

REACTIONS (1)
  - Knee operation [None]

NARRATIVE: CASE EVENT DATE: 20181218
